FAERS Safety Report 14716801 (Version 3)
Quarter: 2018Q2

REPORT INFORMATION
  Report Type: Spontaneous
  Country: FR (occurrence: FR)
  Receive Date: 20180404
  Receipt Date: 20180620
  Transmission Date: 20180711
  Serious: Yes (Other)
  Sender: FDA-Public Use
  Company Number: PHHY2018FR050854

PATIENT
  Age: 43 Year
  Sex: Female

DRUGS (1)
  1. ZOLEDRONIC ACID [Suspect]
     Active Substance: ZOLEDRONIC ACID
     Indication: SKELETAL DYSPLASIA
     Dosage: 5 MG, UNK
     Route: 041

REACTIONS (1)
  - Condition aggravated [Not Recovered/Not Resolved]
